FAERS Safety Report 12510427 (Version 1)
Quarter: 2016Q2

REPORT INFORMATION
  Report Type: Spontaneous
  Country: GB (occurrence: GB)
  Receive Date: 20160629
  Receipt Date: 20160629
  Transmission Date: 20160815
  Serious: Yes (Death, Other)
  Sender: FDA-Public Use
  Company Number: GB-MYLANLABS-2016M1026318

PATIENT

DRUGS (23)
  1. LEVOTHYROXINE. [Concomitant]
     Active Substance: LEVOTHYROXINE
     Dosage: 1 DF, QD
     Dates: start: 20151223, end: 20160307
  2. MORPHINE SULFATE. [Concomitant]
     Active Substance: MORPHINE SULFATE
     Dosage: 2.5 OR 10ML EVERY 4 HOURS AS NEEDED
     Dates: start: 20160209, end: 20160223
  3. WARFARIN SODIUM CLATHRATE [Concomitant]
     Dosage: AS DIRECTED
     Dates: start: 20151223, end: 20160204
  4. DIPROBASE                          /01210201/ [Concomitant]
     Dosage: APPLY AS NEEDED
     Dates: start: 20160204, end: 20160218
  5. PIOGLITAZONE. [Suspect]
     Active Substance: PIOGLITAZONE
     Indication: TYPE 2 DIABETES MELLITUS
     Dosage: 15 MG, UNK
     Route: 048
     Dates: start: 20091012, end: 20150116
  6. CARDICOR [Concomitant]
     Active Substance: BISOPROLOL
     Dosage: 1 DF, QD
     Dates: start: 20151223, end: 20160307
  7. FUROSEMIDE. [Concomitant]
     Active Substance: FUROSEMIDE
     Dosage: 1 DF, QD
     Dates: start: 20151223, end: 20160204
  8. HUMULIN NOS [Concomitant]
     Active Substance: INSULIN HUMAN
     Dosage: USE AS DIRECTED
     Dates: start: 20151223, end: 20160307
  9. VALSARTAN. [Concomitant]
     Active Substance: VALSARTAN
     Dosage: 1 DF, BID
     Dates: start: 20151223, end: 20160204
  10. PIOGLITAZONE. [Suspect]
     Active Substance: PIOGLITAZONE
     Dosage: 30 MG, UNK
     Route: 048
     Dates: start: 201501, end: 201504
  11. COCODAMOL [Concomitant]
     Active Substance: ACETAMINOPHEN\CODEINE PHOSPHATE
     Dosage: TAKE 1 OR 2 4 TIMES/DAY
     Dates: start: 20151223, end: 20160204
  12. DIETHYLAMINE SALICYLATE [Concomitant]
     Active Substance: DIETHYLAMINE SALICYLATE
     Dosage: APPLY AS DIRECTED
     Dates: start: 20151223, end: 20160204
  13. AMLOSTIN                           /00972403/ [Concomitant]
     Dosage: 1 DF, QD
     Dates: start: 20151223, end: 20160204
  14. HALOPERIDOL. [Concomitant]
     Active Substance: HALOPERIDOL
     Dosage: 0.5-1.5MG PRN - UPTO EVERY 6 HOURS
     Route: 058
     Dates: start: 20160204, end: 20160205
  15. LANSOPRAZOLE. [Concomitant]
     Active Substance: LANSOPRAZOLE
     Dosage: 1 DF, QD
     Dates: start: 20151223, end: 20160307
  16. GLYCOPYRRONIUM BROMIDE [Concomitant]
     Active Substance: GLYCOPYRRONIUM
     Dosage: 200-400MCG PRN EVERY 4 HOURS
     Route: 058
     Dates: start: 20160204, end: 20160205
  17. LAXIDO                             /06401201/ [Concomitant]
     Active Substance: POLYETHYLENE GLYCOL 3350\POTASSIUM CHLORIDE\SODIUM BICARBONATE\SODIUM CHLORIDE
     Dosage: UPTO 1 TWICE DAILY
     Dates: start: 20160204, end: 20160307
  18. MIDAZOLAM [Concomitant]
     Active Substance: MIDAZOLAM\MIDAZOLAM HYDROCHLORIDE
     Dosage: 2.5-5MG HOURLY PRN
     Route: 058
     Dates: start: 20160204, end: 20160205
  19. SODIUM PICOSULFATE [Concomitant]
     Active Substance: SODIUM PICOSULFATE
     Dosage: PRN - 5-10ML
     Dates: start: 20160204, end: 20160307
  20. AMITRIPTYLINE HYDROCHLORIDE. [Concomitant]
     Active Substance: AMITRIPTYLINE HYDROCHLORIDE
     Dosage: 2 DF, QD (NOCTE)
     Dates: start: 20160204, end: 20160307
  21. PARACETAMOL [Concomitant]
     Active Substance: ACETAMINOPHEN
     Dosage: 2 DF, QID
     Dates: start: 20160204, end: 20160307
  22. QVAR [Concomitant]
     Active Substance: BECLOMETHASONE DIPROPIONATE
     Dosage: 2 DF, BID
     Dates: start: 20151223, end: 20160307
  23. WATER FOR INJECTIONS [Concomitant]
     Active Substance: WATER
     Dosage: USE AS REQUIRED
     Dates: start: 20160204, end: 20160205

REACTIONS (1)
  - Pancreatic carcinoma metastatic [Fatal]

NARRATIVE: CASE EVENT DATE: 20160121
